FAERS Safety Report 7919098-9 (Version None)
Quarter: 2011Q4

REPORT INFORMATION
  Report Type: 
  Country: None (occurrence: None)
  Receive Date: 20111116
  Receipt Date: 20090618
  Transmission Date: 20120403
  Serious: Yes (Other)
  Sender: FDA-Public Use
  Company Number: PHHY2010TW16742

PATIENT
  Sex: Female

DRUGS (3)
  1. GLEEVEC [Suspect]
     Dosage: 400 MG, UNK
     Route: 048
     Dates: start: 20061101
  2. GLEEVEC [Suspect]
     Indication: GASTROINTESTINAL STROMAL TUMOUR
     Dosage: 400 MG, UNK
     Route: 048
     Dates: start: 20061001
  3. GLEEVEC [Suspect]
     Dosage: 400 MG, SEPARATED TO THREE OR FOUR TIMES PER DAY
     Route: 048

REACTIONS (13)
  - OEDEMA PERIPHERAL [None]
  - HAIR COLOUR CHANGES [None]
  - BLINDNESS [None]
  - HAIR DISORDER [None]
  - PRURITUS [None]
  - NAUSEA [None]
  - DEAFNESS [None]
  - HAIR TEXTURE ABNORMAL [None]
  - SKIN EXFOLIATION [None]
  - RASH [None]
  - MUSCLE SPASMS [None]
  - NAIL DISCOLOURATION [None]
  - FREQUENT BOWEL MOVEMENTS [None]
